FAERS Safety Report 13844241 (Version 5)
Quarter: 2017Q4

REPORT INFORMATION
  Report Type: Spontaneous
  Country: CA (occurrence: CA)
  Receive Date: 20170808
  Receipt Date: 20171031
  Transmission Date: 20180320
  Serious: Yes (Other)
  Sender: FDA-Public Use
  Company Number: CA-PFIZER INC-2017326099

PATIENT
  Age: 54 Year
  Sex: Female
  Weight: 70 kg

DRUGS (8)
  1. SERTRALINE HCL [Suspect]
     Active Substance: SERTRALINE HYDROCHLORIDE
     Dosage: 100 MG, 1X/DAY
     Route: 048
     Dates: start: 2000
  2. VALPROIC ACID. [Concomitant]
     Active Substance: VALPROIC ACID
     Dosage: 500 MG, 1X/DAY
     Route: 048
     Dates: start: 2000
  3. INFLECTRA [Suspect]
     Active Substance: INFLIXIMAB-DYYB
     Dosage: 700 MG, THEN EVERY 8 WEEKS
     Route: 042
     Dates: end: 20170929
  4. MEZAVANT [Concomitant]
     Active Substance: MESALAMINE
     Dosage: 4 DF, DAILY
     Route: 048
  5. INFLECTRA [Suspect]
     Active Substance: INFLIXIMAB-DYYB
     Indication: COLITIS ULCERATIVE
     Dosage: 320 MG, EVERY 0, 2, 6 WEEKS, THEN EVERY 8 WEEKS
     Route: 042
     Dates: start: 20170628
  6. QUETIAPINE. [Concomitant]
     Active Substance: QUETIAPINE
     Dosage: 25 MG, 2X/DAY
     Dates: start: 2015
  7. PREDNISONE. [Concomitant]
     Active Substance: PREDNISONE
     Dosage: 20 MG, 1X/DAY (TAPER DOSE)
     Route: 048
     Dates: start: 2017
  8. INFLECTRA [Suspect]
     Active Substance: INFLIXIMAB-DYYB
     Dosage: 10MG/KG - NEW DOSE WOULD BE 700MG

REACTIONS (13)
  - Diarrhoea [Unknown]
  - Faeces soft [Not Recovered/Not Resolved]
  - Malaise [Unknown]
  - Headache [Unknown]
  - Back pain [Unknown]
  - Pain [Recovered/Resolved]
  - Musculoskeletal chest pain [Unknown]
  - Arthralgia [Unknown]
  - Pyrexia [Recovered/Resolved]
  - Rash [Unknown]
  - Diarrhoea haemorrhagic [Unknown]
  - Haematochezia [Unknown]
  - Frequent bowel movements [Not Recovered/Not Resolved]
